FAERS Safety Report 20013733 (Version 1)
Quarter: 2021Q4

REPORT INFORMATION
  Report Type: Spontaneous
  Country: GB (occurrence: GB)
  Receive Date: 20211029
  Receipt Date: 20211029
  Transmission Date: 20220303
  Serious: Yes (Other)
  Sender: FDA-Public Use
  Company Number: None

PATIENT
  Age: 86 Year
  Sex: Male
  Weight: 78 kg

DRUGS (7)
  1. DOXYCYCLINE [Suspect]
     Active Substance: DOXYCYCLINE
     Dosage: 100MILLIEQUIVALENTS
     Route: 065
     Dates: start: 20211001, end: 20211003
  2. BETAMETHASONE [Concomitant]
     Active Substance: BETAMETHASONE
     Indication: Pruritus
     Dosage: ONCE A DAY UP TO 2 WEEKS
     Dates: start: 20210826
  3. FLUCLOXACILLIN [Concomitant]
     Active Substance: FLUCLOXACILLIN
     Dosage: 2000 MILLIGRAM DAILY; 500MG
     Dates: start: 20210917
  4. FERROUS SULFATE [Concomitant]
     Active Substance: FERROUS SULFATE
     Dosage: 600 MILLIGRAM DAILY; (OR ONCE OR TWICE A DAY IF ONLY TOLERATED AT LOWER DOSE),200MG
     Dates: start: 20210728
  5. FUCIDIN H [Concomitant]
     Dosage: 3 DOSAGE FORMS DAILY; 1DF
     Dates: start: 20210907
  6. HYDROCORTISONE [Concomitant]
     Active Substance: HYDROCORTISONE
     Dosage: APPLY ONCE A DAY AS NEEDED FOR ITCHY SPOTS
     Dates: start: 20210819
  7. LACTULOSE [Concomitant]
     Active Substance: LACTULOSE
     Indication: Constipation
     Dosage: 30 ML DAILY; IF NEEDED,15ML
     Dates: start: 20210921

REACTIONS (2)
  - Hallucination [Recovered/Resolved]
  - Nightmare [Recovered/Resolved]

NARRATIVE: CASE EVENT DATE: 20211001
